FAERS Safety Report 8342977-8 (Version None)
Quarter: 2012Q2

REPORT INFORMATION
  Report Type: 
  Country: None (occurrence: None)
  Receive Date: 20120508
  Receipt Date: 20120426
  Transmission Date: 20120825
  Serious: Yes (Other)
  Sender: FDA-Public Use
  Company Number: PHHY2012EC038249

PATIENT
  Sex: Female

DRUGS (1)
  1. ZOLEDRONOC ACID [Suspect]
     Indication: OSTEOPOROSIS
     Dosage: 5 MG/100ML
     Route: 042
     Dates: start: 20110427

REACTIONS (5)
  - HERPES VIRUS INFECTION [None]
  - EAR PAIN [None]
  - HERPES OPHTHALMIC [None]
  - VISUAL IMPAIRMENT [None]
  - RASH [None]
